FAERS Safety Report 22136554 (Version 1)
Quarter: 2023Q1

REPORT INFORMATION
  Report Type: Spontaneous
  Country: US (occurrence: US)
  Receive Date: 20230324
  Receipt Date: 20230324
  Transmission Date: 20230418
  Serious: Yes (Other)
  Sender: FDA-Public Use
  Company Number: US-TEVA-2023-US-2869418

PATIENT

DRUGS (1)
  1. ADDERALL [Suspect]
     Active Substance: AMPHETAMINE ASPARTATE\AMPHETAMINE SULFATE\DEXTROAMPHETAMINE SACCHARATE\DEXTROAMPHETAMINE SULFATE
     Indication: Product used for unknown indication
     Dosage: 40 MILLIGRAM DAILY; 5 MG

REACTIONS (6)
  - Hypoglycaemia [Unknown]
  - Anxiety [Unknown]
  - Panic attack [Unknown]
  - Decreased appetite [Unknown]
  - Dyspnoea [Unknown]
  - Product availability issue [Unknown]
